FAERS Safety Report 5479215-X (Version None)
Quarter: 2007Q4

REPORT INFORMATION
  Report Type: 
  Country: None (occurrence: None)
  Receive Date: 20071008
  Receipt Date: 20071001
  Transmission Date: 20080405
  Serious: Yes (Other)
  Sender: FDA-Public Use
  Company Number: PHEH2006US03610

PATIENT
  Sex: Female

DRUGS (5)
  1. AREDIA [Suspect]
  2. ZOMETA [Suspect]
     Indication: METASTASES TO BONE
     Dosage: 4 MG, QMO
     Route: 042
     Dates: start: 20030718, end: 20051001
  3. ZOMETA [Suspect]
     Dosage: 4 MG, QMO
     Route: 042
     Dates: start: 20060526
  4. FEMARA [Concomitant]
     Dosage: 2.5 MG, QD
     Route: 048
  5. FASLODEX [Concomitant]

REACTIONS (23)
  - ALVEOLAR OSTEITIS [None]
  - ANHEDONIA [None]
  - ANXIETY [None]
  - BONE DEBRIDEMENT [None]
  - BONE DISORDER [None]
  - CYST [None]
  - DYSGEUSIA [None]
  - FALL [None]
  - GINGIVAL PAIN [None]
  - GINGIVITIS [None]
  - IMPAIRED HEALING [None]
  - KNEE ARTHROPLASTY [None]
  - LOOSE TOOTH [None]
  - OSTEONECROSIS [None]
  - PAIN [None]
  - PAIN IN JAW [None]
  - PERIODONTAL DISEASE [None]
  - RESORPTION BONE INCREASED [None]
  - SENSITIVITY OF TEETH [None]
  - SWELLING [None]
  - TOOTH EXTRACTION [None]
  - WOUND DEBRIDEMENT [None]
  - X-RAY [None]
